FAERS Safety Report 6763008-7 (Version None)
Quarter: 2010Q2

REPORT INFORMATION
  Report Type: 
  Country: None (occurrence: None)
  Receive Date: 20100609
  Receipt Date: 20100318
  Transmission Date: 20101027
  Serious: Yes (Hospitalization)
  Sender: FDA-Public Use
  Company Number: FR-BAYER-201019728GPV

PATIENT
  Age: 31 Year
  Sex: Female

DRUGS (1)
  1. ADALATE 10 MG CAPSULE [Suspect]
     Indication: UTERINE CONTRACTIONS DURING PREGNANCY
     Dosage: TOTAL DAILY DOSE: 30 MG  UNIT DOSE: 10 MG
     Route: 048
     Dates: start: 20100226, end: 20100226

REACTIONS (5)
  - CYANOSIS [None]
  - FEELING HOT [None]
  - GENERALISED ERYTHEMA [None]
  - HEADACHE [None]
  - LIVEDO RETICULARIS [None]
